FAERS Safety Report 8853453 (Version 6)
Quarter: 2013Q2

REPORT INFORMATION
  Report Type: Report from Study
  Country: FR (occurrence: FR)
  Receive Date: 20121022
  Receipt Date: 20130613
  Transmission Date: 20140414
  Serious: Yes (Hospitalization)
  Sender: FDA-Public Use
  Company Number: FR-GLAXOSMITHKLINE-B0839026A

PATIENT
  Age: 54 Year
  Sex: Female
  Weight: 53 kg

DRUGS (7)
  1. PAZOPANIB [Suspect]
     Indication: LEIOMYOSARCOMA
     Dosage: 600MG PER DAY
     Route: 048
     Dates: start: 20120516, end: 20121010
  2. GEMCITABINE [Suspect]
     Indication: LEIOMYOSARCOMA
     Dosage: 1292.68MG PER DAY
     Route: 042
     Dates: start: 20120516
  3. ADRIBLASTINE [Suspect]
     Dosage: 524MG CUMULATIVE DOSE
     Dates: start: 20110224, end: 20110609
  4. IRRADIATION [Suspect]
     Dates: start: 2001
  5. LEVOTHYROX [Concomitant]
     Indication: HYPOTHYROIDISM
     Route: 048
     Dates: start: 20120627
  6. PARACETAMOL [Concomitant]
     Indication: PYREXIA
     Route: 048
  7. ERYTHROPOIETIN [Concomitant]
     Indication: ANAEMIA
     Route: 042
     Dates: start: 201209, end: 20121011

REACTIONS (1)
  - Cardiac disorder [Recovered/Resolved with Sequelae]
